FAERS Safety Report 5492391-8 (Version None)
Quarter: 2007Q4

REPORT INFORMATION
  Report Type: 
  Country: None (occurrence: None)
  Receive Date: 20071015
  Receipt Date: 20070815
  Transmission Date: 20080405
  Serious: No
  Sender: FDA-Public Use
  Company Number: 2007SP002857

PATIENT
  Age: 75 Year
  Sex: Female
  Weight: 81.6475 kg

DRUGS (9)
  1. LUNESTA [Suspect]
     Indication: INSOMNIA
     Dosage: 2 MG;HS;ORAL, 2 MG;1X;ORAL
     Route: 048
     Dates: start: 20070815, end: 20070815
  2. LUNESTA [Suspect]
     Indication: INSOMNIA
     Dosage: 2 MG;HS;ORAL, 2 MG;1X;ORAL
     Route: 048
     Dates: start: 20070813
  3. AMITRIPTYLINE HCL [Concomitant]
  4. NEURONTIN [Concomitant]
  5. AMARYL [Concomitant]
  6. TOPROL-XL [Concomitant]
  7. LOTREL [Concomitant]
  8. METFORMIN HCL [Concomitant]
  9. BYETTA [Concomitant]

REACTIONS (1)
  - INITIAL INSOMNIA [None]
